FAERS Safety Report 5657607-3 (Version None)
Quarter: 2008Q1

REPORT INFORMATION
  Report Type: 
  Country: None (occurrence: None)
  Receive Date: 20080307
  Receipt Date: 20080307
  Transmission Date: 20080703
  Serious: Yes (Other)
  Sender: FDA-Public Use
  Company Number: None

PATIENT
  Sex: Male
  Weight: 117.028 kg

DRUGS (2)
  1. ZYRTEC [Suspect]
     Indication: MULTIPLE ALLERGIES
     Dosage: 10MG 1 PO Q DAY PO
     Route: 048
     Dates: start: 20050401, end: 20080213
  2. ZYRTEC [Suspect]
     Indication: SEASONAL ALLERGY
     Dosage: 10MG 1 PO Q DAY PO
     Route: 048
     Dates: start: 20050401, end: 20080213

REACTIONS (3)
  - ABNORMAL BEHAVIOUR [None]
  - CIRCADIAN RHYTHM SLEEP DISORDER [None]
  - PRURITUS [None]
